FAERS Safety Report 10609239 (Version 2)
Quarter: 2014Q4

REPORT INFORMATION
  Report Type: Spontaneous
  Country: CA (occurrence: CA)
  Receive Date: 20141126
  Receipt Date: 20141204
  Transmission Date: 20150529
  Serious: Yes (Hospitalization, Other)
  Sender: FDA-Public Use
  Company Number: CA-AMGEN-CANSP2014090844

PATIENT
  Age: 44 Year
  Sex: Female

DRUGS (8)
  1. VITAMIN D                          /00107901/ [Concomitant]
     Active Substance: ERGOCALCIFEROL
     Dosage: 10000 UI, QWK
     Route: 048
     Dates: start: 20141013
  2. ENBREL [Suspect]
     Active Substance: ETANERCEPT
     Indication: RHEUMATOID ARTHRITIS
     Dosage: 25 MG, 2 TIMES/WK
     Route: 058
     Dates: start: 20060322
  3. RISEDRONATE [Concomitant]
     Active Substance: RISEDRONATE SODIUM
     Dosage: 35 MG, QWK
     Route: 048
     Dates: start: 20141013
  4. ACTONEL [Concomitant]
     Active Substance: RISEDRONATE SODIUM
     Dosage: UNK
  5. TRILEPTAL [Concomitant]
     Active Substance: OXCARBAZEPINE
     Dosage: 600 MG, IN AM
     Route: 048
     Dates: start: 20051113
  6. TRILEPTAL [Concomitant]
     Active Substance: OXCARBAZEPINE
     Dosage: 300 MG, QHS
     Route: 048
     Dates: start: 20061224
  7. CALCIUM [Concomitant]
     Active Substance: CALCIUM
     Dosage: 500 MG, BID
     Route: 048
     Dates: start: 20141013
  8. TOPAMAX [Concomitant]
     Active Substance: TOPIRAMATE
     Dosage: 100 MG, BID
     Route: 048
     Dates: start: 20051113

REACTIONS (3)
  - Fall [Unknown]
  - Rib fracture [Not Recovered/Not Resolved]
  - Fracture delayed union [Unknown]

NARRATIVE: CASE EVENT DATE: 2014
